FAERS Safety Report 12408063 (Version 1)
Quarter: 2016Q2

REPORT INFORMATION
  Report Type: Spontaneous
  Country: None (occurrence: US)
  Receive Date: 20160526
  Receipt Date: 20160526
  Transmission Date: 20160815
  Serious: No
  Sender: FDA-Public Use
  Company Number: US-SPEAR PHARMACEUTICALS-1052762

PATIENT
  Age: 82 Year
  Sex: Male
  Weight: 68.18 kg

DRUGS (1)
  1. FLUOROURACIL. [Suspect]
     Active Substance: FLUOROURACIL
     Indication: ACTINIC KERATOSIS
     Route: 061
     Dates: start: 20160219, end: 20160229

REACTIONS (3)
  - Glossodynia [None]
  - Adverse reaction [Unknown]
  - Throat irritation [None]

NARRATIVE: CASE EVENT DATE: 20160219
